FAERS Safety Report 21792995 (Version 3)
Quarter: 2023Q1

REPORT INFORMATION
  Report Type: Report from Study
  Country: US (occurrence: US)
  Receive Date: 20221229
  Receipt Date: 20230208
  Transmission Date: 20230417
  Serious: Yes (Death, Hospitalization, Other)
  Sender: FDA-Public Use
  Company Number: US-ORG100014127-2022001419

PATIENT
  Age: 36 Year
  Sex: Female
  Weight: 83 kg

DRUGS (11)
  1. LYSODREN [Suspect]
     Active Substance: MITOTANE
     Indication: Adrenocortical carcinoma
     Route: 048
     Dates: start: 20221102, end: 20221111
  2. LYSODREN [Suspect]
     Active Substance: MITOTANE
     Indication: Adrenocortical carcinoma
     Route: 048
     Dates: start: 20221112, end: 20221120
  3. LYSODREN [Suspect]
     Active Substance: MITOTANE
     Indication: Adrenocortical carcinoma
     Route: 048
     Dates: start: 20221121, end: 20221209
  4. Cymbalta Cap 60 mg [Concomitant]
     Indication: Product used for unknown indication
  5. Duloxetine delayed release 30 mg [Concomitant]
     Indication: Product used for unknown indication
  6. Fyremadel 20 mcg SYR [Concomitant]
     Indication: Product used for unknown indication
  7. Menopur 75 IU SDV W/Q-Cap [Concomitant]
     Indication: Product used for unknown indication
  8. Novarel 5000 Unit MDV30 [Concomitant]
     Indication: Product used for unknown indication
  9. LORAZEPAM [Concomitant]
     Active Substance: LORAZEPAM
     Indication: Anxiety
     Dosage: 1-2 TABLETS PER DAY OR AS NEEDED
  10. ONDANSETRON [Concomitant]
     Active Substance: ONDANSETRON
     Indication: Nausea
     Dosage: 1 TABLET EVERY 8 HOURS OR AS NEEDED
  11. Hydrocortisone 20 mg [Concomitant]
     Indication: Product used for unknown indication

REACTIONS (6)
  - Pancreatitis acute [Fatal]
  - Multiple organ dysfunction syndrome [Fatal]
  - Hypertriglyceridaemia [Fatal]
  - Respiratory syncytial virus infection [Recovering/Resolving]
  - Fatigue [Unknown]
  - Off label use [Unknown]

NARRATIVE: CASE EVENT DATE: 20220101
